FAERS Safety Report 9928209 (Version 1)
Quarter: 2014Q1

REPORT INFORMATION
  Report Type: Spontaneous
  Country: US (occurrence: None)
  Receive Date: 20140224
  Receipt Date: 20140224
  Transmission Date: 20141002
  Serious: Yes (Death)
  Sender: FDA-Public Use
  Company Number: NL01PV14.35139

PATIENT
  Age: 44 Year
  Sex: Female

DRUGS (3)
  1. ZOLPIDEM TABLETS [Suspect]
     Route: 048
  2. ETHANOL [Suspect]
     Route: 048
  3. LEVAMISOLE [Suspect]

REACTIONS (2)
  - Drug abuse [None]
  - Exposure via ingestion [None]
